FAERS Safety Report 6321818-4 (Version None)
Quarter: 2009Q3

REPORT INFORMATION
  Report Type: 
  Country: None (occurrence: None)
  Receive Date: 20090821
  Receipt Date: 20090821
  Transmission Date: 20100115
  Serious: Yes (Life-Threatening, Hospitalization)
  Sender: FDA-Public Use
  Company Number: None

PATIENT
  Age: 65 Year
  Sex: Male
  Weight: 96.1626 kg

DRUGS (11)
  1. JANUVIA [Suspect]
     Indication: TYPE 2 DIABETES MELLITUS
     Dosage: 100MG TID PO
     Route: 048
     Dates: start: 20090701
  2. SYNTHROID [Concomitant]
  3. PRANDIN [Concomitant]
  4. CELEBREX [Concomitant]
  5. INDERAL [Concomitant]
  6. BENICAR [Concomitant]
  7. ATENOLOL [Concomitant]
  8. ACTOS [Concomitant]
  9. TRICOR [Concomitant]
  10. LYRICA [Concomitant]
  11. LOVAZA [Concomitant]

REACTIONS (3)
  - DIVERTICULUM INTESTINAL HAEMORRHAGIC [None]
  - PANCREATITIS [None]
  - PSEUDOCYST [None]
